FAERS Safety Report 24634042 (Version 3)
Quarter: 2025Q1

REPORT INFORMATION
  Report Type: Spontaneous
  Country: IT (occurrence: IT)
  Receive Date: 20241119
  Receipt Date: 20250110
  Transmission Date: 20250409
  Serious: Yes (Hospitalization, Other)
  Sender: AUROBINDO
  Company Number: IT-RDY-LIT/ITA/24/0016252

PATIENT
  Age: 38 Year
  Sex: Female

DRUGS (7)
  1. FINGOLIMOD [Suspect]
     Active Substance: FINGOLIMOD
     Indication: Relapsing-remitting multiple sclerosis
     Route: 065
     Dates: start: 201709, end: 20220325
  2. FINGOLIMOD [Suspect]
     Active Substance: FINGOLIMOD
     Route: 065
     Dates: start: 201909, end: 20220325
  3. INTERFERON BETA-1A [Suspect]
     Active Substance: INTERFERON BETA-1A
     Indication: Relapsing multiple sclerosis
     Route: 065
     Dates: start: 201709
  4. OCRELIZUMAB [Concomitant]
     Active Substance: OCRELIZUMAB
     Indication: Product used for unknown indication
     Route: 042
     Dates: start: 20220428
  5. OCRELIZUMAB [Concomitant]
     Active Substance: OCRELIZUMAB
     Route: 042
  6. OCRELIZUMAB [Concomitant]
     Active Substance: OCRELIZUMAB
     Route: 042
     Dates: start: 20221214, end: 202306
  7. OCRELIZUMAB [Concomitant]
     Active Substance: OCRELIZUMAB
     Route: 042
     Dates: start: 202401

REACTIONS (4)
  - Lymphopenia [Recovering/Resolving]
  - Multiple sclerosis relapse [Unknown]
  - Drug ineffective [Unknown]
  - Human polyomavirus infection [Unknown]

NARRATIVE: CASE EVENT DATE: 20190901
